FAERS Safety Report 8188341-6 (Version None)
Quarter: 2012Q1

REPORT INFORMATION
  Report Type: 
  Country: None (occurrence: None)
  Receive Date: 20120221
  Receipt Date: 20110527
  Transmission Date: 20120608
  Serious: Yes (Hospitalization)
  Sender: FDA-Public Use
  Company Number: PHHY2011US37629

PATIENT
  Age: 68 Year
  Sex: Male

DRUGS (5)
  1. TOBI [Suspect]
     Indication: BRONCHIECTASIS
     Dosage: 300 MG, BID (30 DAYS AND 30 DAYS OFF), INHALATION
     Route: 055
     Dates: start: 20110401
  2. SYMBICORT [Concomitant]
  3. SPIRIVA [Concomitant]
  4. CYMBALTA [Concomitant]
  5. REMERON [Concomitant]

REACTIONS (1)
  - PNEUMONIA [None]
